FAERS Safety Report 10543582 (Version 3)
Quarter: 2015Q1

REPORT INFORMATION
  Report Type: Report from Study
  Country: JP (occurrence: JP)
  Receive Date: 20141027
  Receipt Date: 20150119
  Transmission Date: 20150720
  Serious: Yes (Life-Threatening, Hospitalization)
  Sender: FDA-Public Use
  Company Number: JP-PFIZER INC-2014283393

PATIENT
  Age: 61 Year
  Sex: Male
  Weight: 68 kg

DRUGS (7)
  1. OXYCONTIN DAINIPPO [Concomitant]
     Dosage: 5 MG, 2X/DAY
     Route: 048
     Dates: end: 20140827
  2. NEXIUM [Concomitant]
     Active Substance: ESOMEPRAZOLE MAGNESIUM
     Dosage: 20 MG, 1X/DAY
     Route: 048
  3. GASTROM [Concomitant]
     Active Substance: ECABET
     Dosage: 1.5 MG, 2X/DAY
     Route: 048
  4. MOHRUS [Concomitant]
     Active Substance: KETOPROFEN
     Dosage: 40 MG, 1X/DAY
     Route: 062
  5. XALKORI [Suspect]
     Active Substance: CRIZOTINIB
     Indication: NON-SMALL CELL LUNG CANCER
     Dosage: 250 MG, 2X/DAY
     Route: 048
     Dates: start: 20140319, end: 20140814
  6. MAGMITT [Concomitant]
     Active Substance: MAGNESIUM OXIDE
     Dosage: 330 MG, 3X/DAY
     Route: 048
  7. VOLTAREN [Concomitant]
     Active Substance: DICLOFENAC SODIUM
     Dosage: UNK

REACTIONS (2)
  - Venous thrombosis limb [Not Recovered/Not Resolved]
  - Pulmonary artery thrombosis [Recovering/Resolving]

NARRATIVE: CASE EVENT DATE: 20140814
